FAERS Safety Report 23302134 (Version 1)
Quarter: 2023Q4

REPORT INFORMATION
  Report Type: Report from Study
  Country: US (occurrence: US)
  Receive Date: 20231215
  Receipt Date: 20231215
  Transmission Date: 20240110
  Serious: No
  Sender: FDA-Public Use
  Company Number: US-BIOVITRUM-2023-US-020351

PATIENT
  Age: 12 Month
  Sex: Male
  Weight: 11.65 kg

DRUGS (17)
  1. SYNAGIS [Suspect]
     Active Substance: PALIVIZUMAB
     Indication: Pulmonary hypertension
     Dosage: INJECT 15 MG/KG INTRAMUSCULARLY ONCE EVERY 28 TO 30 DAYS (DOSE BASED ON PATIENT^S CURRENT WEIGHT)
     Route: 030
  2. SYNAGIS [Suspect]
     Active Substance: PALIVIZUMAB
     Indication: Acute respiratory failure
  3. SYNAGIS [Suspect]
     Active Substance: PALIVIZUMAB
     Indication: Premature baby
  4. SYNAGIS [Suspect]
     Active Substance: PALIVIZUMAB
     Indication: Bronchopulmonary dysplasia
  5. SYNAGIS [Suspect]
     Active Substance: PALIVIZUMAB
     Indication: Renal failure
  6. SYNAGIS [Suspect]
     Active Substance: PALIVIZUMAB
     Indication: Cardiac septal defect
  7. SYNAGIS [Suspect]
     Active Substance: PALIVIZUMAB
     Indication: Pulmonary hypoplasia
  8. SYNAGIS [Suspect]
     Active Substance: PALIVIZUMAB
     Indication: Trisomy 21
  9. SYNAGIS [Suspect]
     Active Substance: PALIVIZUMAB
     Indication: Gastrostomy
  10. SYNAGIS [Suspect]
     Active Substance: PALIVIZUMAB
     Indication: Bronchial dysplasia
  11. SODIUM CITRATE/CITRIC ACI [Concomitant]
     Indication: Product used for unknown indication
  12. CALCITRIOL [Concomitant]
     Active Substance: CALCITRIOL
     Indication: Product used for unknown indication
  13. TADALAFIL [Concomitant]
     Active Substance: TADALAFIL
     Indication: Product used for unknown indication
  14. BACLOFEN [Concomitant]
     Active Substance: BACLOFEN
     Indication: Product used for unknown indication
  15. NEXIUM [Concomitant]
     Active Substance: ESOMEPRAZOLE MAGNESIUM
     Indication: Product used for unknown indication
  16. PROBIOTICS NOS [Concomitant]
     Active Substance: PROBIOTICS NOS
     Indication: Product used for unknown indication
  17. VITAMINS [Concomitant]
     Active Substance: VITAMINS
     Indication: Product used for unknown indication

REACTIONS (2)
  - Pyrexia [Recovered/Resolved]
  - Cough [Recovered/Resolved]
